FAERS Safety Report 9824421 (Version 1)
Quarter: 2014Q1

REPORT INFORMATION
  Report Type: Report from Study
  Country: KR (occurrence: KR)
  Receive Date: 20140116
  Receipt Date: 20140116
  Transmission Date: 20141002
  Serious: Yes (Hospitalization, Other)
  Sender: FDA-Public Use
  Company Number: KR-ROCHE-1334557

PATIENT
  Age: 81 Year
  Sex: Male
  Weight: 57.07 kg

DRUGS (1)
  1. RANIBIZUMAB [Suspect]
     Indication: AGE-RELATED MACULAR DEGENERATION
     Dosage: 50 UI, RIGHT EYE, LAST INJECTION RECEIVED ON 04/JUL/2011 (DOSE 50 UI)
     Route: 050
     Dates: start: 20110228

REACTIONS (6)
  - Vitreous opacities [Recovered/Resolved with Sequelae]
  - Retinopathy proliferative [Recovered/Resolved with Sequelae]
  - Retinal detachment [Recovered/Resolved with Sequelae]
  - Vitreous haemorrhage [Recovered/Resolved with Sequelae]
  - Retinal haemorrhage [Unknown]
  - Retinal tear [Unknown]
